FAERS Safety Report 4904981-9 (Version None)
Quarter: 2006Q1

REPORT INFORMATION
  Report Type: 
  Country: None (occurrence: None)
  Receive Date: 20060208
  Receipt Date: 20051101
  Transmission Date: 20060701
  Serious: No
  Sender: FDA-Public Use
  Company Number: US-GLAXOSMITHKLINE-A0580485A

PATIENT
  Age: 59 Year
  Sex: Female

DRUGS (3)
  1. PAXIL [Suspect]
     Indication: ANXIETY
     Dosage: 20MG PER DAY
     Route: 048
     Dates: start: 20040101, end: 20040101
  2. PREMPRO [Concomitant]
  3. PAXIL [Concomitant]
     Dosage: 20MG PER DAY
     Route: 048

REACTIONS (4)
  - FEELING DRUNK [None]
  - FEELING JITTERY [None]
  - NERVOUSNESS [None]
  - VERTIGO [None]
